FAERS Safety Report 8986155 (Version 1)
Quarter: 2012Q4

REPORT INFORMATION
  Report Type: Spontaneous
  Country: US (occurrence: None)
  Receive Date: 20121214
  Receipt Date: 20121214
  Transmission Date: 20130627
  Serious: Yes (Hospitalization)
  Sender: FDA-Public Use
  Company Number: 2012-004345

PATIENT
  Age: 89 Year
  Sex: Female

DRUGS (4)
  1. ACTONEL (RISEDRONATE SODIUM) TABLET, 35MG [Suspect]
     Indication: OSTEOPENIA
     Route: 048
     Dates: start: 2007, end: 20121130
  2. ACTONEL (RISEDRONATE SODIUM) TABLET, 35MG [Suspect]
     Indication: PROPHYLAXIS NOS
     Route: 048
     Dates: start: 2007, end: 20121130
  3. LIPID MODIFYING AGENTS [Concomitant]
  4. ANTIHYPERTENSIVES [Concomitant]

REACTIONS (4)
  - Atypical femur fracture [None]
  - Wrist fracture [None]
  - Fall [None]
  - Groin pain [None]
